FAERS Safety Report 6098181-X (Version None)
Quarter: 2009Q1

REPORT INFORMATION
  Report Type: 
  Country: None (occurrence: None)
  Receive Date: 20090227
  Receipt Date: 20090222
  Transmission Date: 20090719
  Serious: Yes (Other)
  Sender: FDA-Public Use
  Company Number: PHHY2009BR06754

PATIENT

DRUGS (2)
  1. OXCARBAZEPINE [Suspect]
     Dosage: 300 MG, BID
     Route: 048
  2. LOCAL ANAESTHETICS [Interacting]
     Indication: TOOTH EXTRACTION

REACTIONS (3)
  - CONVULSION [None]
  - DRUG INTERACTION [None]
  - TOOTH EXTRACTION [None]
